FAERS Safety Report 12945454 (Version 1)
Quarter: 2016Q4

REPORT INFORMATION
  Report Type: Spontaneous
  Country: US (occurrence: US)
  Receive Date: 20161116
  Receipt Date: 20161116
  Transmission Date: 20170207
  Serious: No
  Sender: FDA-Public Use
  Company Number: US-JNJFOC-20161005967

PATIENT
  Sex: Female

DRUGS (2)
  1. WOMENS ROGAINE UNSCENTED [Suspect]
     Active Substance: MINOXIDIL
     Indication: ANDROGENETIC ALOPECIA
     Dosage: FULL DOSE
     Route: 061
     Dates: end: 20161006
  2. WOMENS ROGAINE UNSCENTED [Suspect]
     Active Substance: MINOXIDIL
     Indication: ANDROGENETIC ALOPECIA
     Dosage: SMALL DOSE
     Route: 061

REACTIONS (5)
  - Cardiac disorder [Unknown]
  - Incorrect dose administered [Unknown]
  - Eye swelling [Unknown]
  - Peripheral swelling [Unknown]
  - Middle insomnia [Unknown]

NARRATIVE: CASE EVENT DATE: 201610
